FAERS Safety Report 18420159 (Version 1)
Quarter: 2020Q4

REPORT INFORMATION
  Report Type: Spontaneous
  Country: LK (occurrence: LK)
  Receive Date: 20201023
  Receipt Date: 20201023
  Transmission Date: 20210114
  Serious: Yes (Life-Threatening, Hospitalization, Other)
  Sender: FDA-Public Use
  Company Number: LK-MACLEODS PHARMACEUTICALS US LTD-MAC2020028691

PATIENT

DRUGS (1)
  1. METFORMIN [Suspect]
     Active Substance: METFORMIN HYDROCHLORIDE
     Indication: PRODUCT USED FOR UNKNOWN INDICATION
     Dosage: 17.5 GRAM,  35 TABLETS
     Route: 065

REACTIONS (13)
  - Intentional overdose [Unknown]
  - Drug interaction [Unknown]
  - Metabolic acidosis [Recovered/Resolved]
  - Suicide attempt [Unknown]
  - Acute kidney injury [Recovered/Resolved]
  - Abdominal pain upper [Unknown]
  - Generalised tonic-clonic seizure [Recovered/Resolved]
  - Vomiting [Unknown]
  - Dyspnoea [Unknown]
  - Toxicity to various agents [Unknown]
  - Lactic acidosis [Recovered/Resolved]
  - Hypotension [Unknown]
  - Hypoglycaemia [Unknown]
